FAERS Safety Report 7124918-4 (Version None)
Quarter: 2010Q4

REPORT INFORMATION
  Report Type: 
  Country: None (occurrence: None)
  Receive Date: 20101129
  Receipt Date: 20101118
  Transmission Date: 20110411
  Serious: Yes (Hospitalization)
  Sender: FDA-Public Use
  Company Number: CA-JNJFOC-20101107416

PATIENT
  Sex: Male
  Weight: 101 kg

DRUGS (12)
  1. REMICADE [Suspect]
     Indication: CROHN'S DISEASE
     Route: 042
  2. URSODIOL [Concomitant]
  3. CALCIUM [Concomitant]
  4. VITAMIN D [Concomitant]
  5. TRAZODONE [Concomitant]
  6. HYDROXYZINE [Concomitant]
  7. PANTOLOC [Concomitant]
  8. COLCHICINE [Concomitant]
  9. CIPRALEX [Concomitant]
  10. ACTONEL [Concomitant]
  11. ASACOL [Concomitant]
  12. PREDNISONE [Concomitant]
     Route: 048

REACTIONS (5)
  - ABDOMINAL PAIN [None]
  - BILIARY TRACT DISORDER [None]
  - NAUSEA [None]
  - PYREXIA [None]
  - VOMITING [None]
